FAERS Safety Report 14026802 (Version 1)
Quarter: 2017Q3

REPORT INFORMATION
  Report Type: Spontaneous
  Country: US (occurrence: US)
  Receive Date: 20170929
  Receipt Date: 20170929
  Transmission Date: 20171128
  Serious: No
  Sender: FDA-Public Use
  Company Number: US-NOVEN PHARMACEUTICALS, INC.-US2016002093

PATIENT

DRUGS (2)
  1. COMBIPATCH [Suspect]
     Active Substance: ESTRADIOL\NORETHINDRONE ACETATE
     Indication: MENOPAUSAL SYMPTOMS
     Dosage: UNK, UNKNOWN
     Route: 062
     Dates: start: 201512
  2. SYNTHROID [Concomitant]
     Active Substance: LEVOTHYROXINE SODIUM
     Indication: HYPOTHYROIDISM

REACTIONS (4)
  - Off label use [Unknown]
  - Application site erythema [Unknown]
  - Application site pruritus [Unknown]
  - Application site dryness [Unknown]

NARRATIVE: CASE EVENT DATE: 201512
